FAERS Safety Report 16312164 (Version 1)
Quarter: 2019Q2

REPORT INFORMATION
  Report Type: Spontaneous
  Country: US (occurrence: US)
  Receive Date: 20190515
  Receipt Date: 20190515
  Transmission Date: 20190711
  Serious: No
  Sender: FDA-Public Use
  Company Number: US-TEVA-2019-US-1048625

PATIENT
  Sex: Male

DRUGS (1)
  1. LORAZEPAM. [Suspect]
     Active Substance: LORAZEPAM
     Route: 065
     Dates: start: 201808

REACTIONS (3)
  - Abdominal discomfort [Unknown]
  - Flatulence [Unknown]
  - Abdominal pain [Unknown]

NARRATIVE: CASE EVENT DATE: 201904
